FAERS Safety Report 4299185-X (Version None)
Quarter: 2004Q1

REPORT INFORMATION
  Report Type: 
  Country: None (occurrence: None)
  Receive Date: 20040219
  Receipt Date: 20040210
  Transmission Date: 20041129
  Serious: Yes (Death, Other)
  Sender: FDA-Public Use
  Company Number: JP-BRISTOL-MYERS SQUIBB COMPANY-12500625

PATIENT
  Age: 1 Year
  Sex: Male

DRUGS (5)
  1. VEPESID [Suspect]
     Indication: B-CELL LYMPHOMA
  2. CYTARABINE [Suspect]
     Indication: B-CELL LYMPHOMA
     Dosage: 2 G/M^2
  3. FILDESIN [Suspect]
     Indication: B-CELL LYMPHOMA
  4. FARMORUBICIN [Suspect]
     Indication: B-CELL LYMPHOMA
  5. DEXAMETHASONE [Suspect]
     Indication: B-CELL LYMPHOMA

REACTIONS (7)
  - BONE MARROW DEPRESSION [None]
  - BRONCHOPNEUMONIA [None]
  - DISSEMINATED INTRAVASCULAR COAGULATION [None]
  - HERPES ZOSTER [None]
  - PULMONARY HAEMORRHAGE [None]
  - RENAL FAILURE ACUTE [None]
  - WHITE BLOOD CELL COUNT DECREASED [None]
